FAERS Safety Report 16329807 (Version 1)
Quarter: 2019Q2

REPORT INFORMATION
  Report Type: Spontaneous
  Country: US (occurrence: US)
  Receive Date: 20190520
  Receipt Date: 20190520
  Transmission Date: 20190711
  Serious: No
  Sender: FDA-Public Use
  Company Number: US-HTU-2019US018817

PATIENT
  Sex: Female

DRUGS (1)
  1. VALCHLOR [Suspect]
     Active Substance: MECHLORETHAMINE
     Indication: CUTANEOUS T-CELL LYMPHOMA
     Dosage: UNK, THIN FILM ONCE DAILY
     Dates: start: 20190306

REACTIONS (3)
  - Skin discolouration [Recovered/Resolved]
  - Skin texture abnormal [Recovered/Resolved]
  - Wrong technique in product usage process [Recovered/Resolved]
